FAERS Safety Report 5808641-1 (Version None)
Quarter: 2008Q3

REPORT INFORMATION
  Report Type: 
  Country: None (occurrence: None)
  Receive Date: 20080714
  Receipt Date: 20080708
  Transmission Date: 20090109
  Serious: Yes (Hospitalization)
  Sender: FDA-Public Use
  Company Number: US-BRISTOL-MYERS SQUIBB COMPANY-14220719

PATIENT
  Age: 60 Year
  Sex: Male

DRUGS (7)
  1. ORENCIA [Suspect]
     Indication: RHEUMATOID ARTHRITIS
     Dosage: ALSO GIVEN ON 08-JUN-2008.
     Route: 042
     Dates: start: 20080605
  2. CELEBREX [Suspect]
  3. ASPIRIN [Concomitant]
  4. WELLBUTRIN SR [Concomitant]
  5. PREDNISONE TAB [Concomitant]
  6. PRILOSEC [Concomitant]
  7. MULTI-VITAMIN [Concomitant]

REACTIONS (1)
  - CHEST PAIN [None]
